FAERS Safety Report 9759573 (Version 1)
Quarter: 2013Q4

REPORT INFORMATION
  Report Type: Spontaneous
  Country: US (occurrence: US)
  Receive Date: 20131216
  Receipt Date: 20131216
  Transmission Date: 20140711
  Serious: No
  Sender: FDA-Public Use
  Company Number: US-GILEAD-2010-0028137

PATIENT
  Sex: Female
  Weight: 85.27 kg

DRUGS (15)
  1. LETAIRIS [Suspect]
     Indication: PULMONARY ARTERIAL HYPERTENSION
     Route: 048
     Dates: start: 20090715
  2. REVATIO [Concomitant]
  3. WARFARIN [Concomitant]
  4. FUROSEMIDE [Concomitant]
  5. OXYCODONE [Concomitant]
  6. CEPHELEXIN [Concomitant]
  7. OMEPRAZOLE [Concomitant]
  8. VICODIN [Concomitant]
  9. LEXAPRO [Concomitant]
  10. ACYCLOVIR [Concomitant]
  11. ROBITUSSIN [Concomitant]
  12. KLOR-CON [Concomitant]
  13. FERROUS SULFATE [Concomitant]
  14. CALCIUM [Concomitant]
  15. VITAMIN B-12 [Concomitant]

REACTIONS (1)
  - Oedema [Unknown]
